FAERS Safety Report 4679252-9 (Version None)
Quarter: 2005Q2

REPORT INFORMATION
  Report Type: 
  Country: None (occurrence: None)
  Receive Date: 20050531
  Receipt Date: 20050531
  Transmission Date: 20051028
  Serious: No
  Sender: FDA-Public Use
  Company Number: None

PATIENT
  Age: 33 Year
  Sex: Female
  Weight: 90.7194 kg

DRUGS (2)
  1. PAXIL [Suspect]
     Indication: ANXIETY
     Dosage: 12.5 MG ONCE A DAY ORAL
     Route: 048
     Dates: start: 20050215, end: 20050515
  2. PAXIL [Suspect]
     Indication: DEPRESSION
     Dosage: 12.5 MG ONCE A DAY ORAL
     Route: 048
     Dates: start: 20050215, end: 20050515

REACTIONS (18)
  - ACNE [None]
  - AGGRESSION [None]
  - AMNESIA [None]
  - DIZZINESS [None]
  - DRY MOUTH [None]
  - DYSPNOEA [None]
  - FATIGUE [None]
  - HAIR GROWTH ABNORMAL [None]
  - HYPERHIDROSIS [None]
  - INSOMNIA [None]
  - IRRITABILITY [None]
  - PARAESTHESIA [None]
  - RASH PRURITIC [None]
  - SLEEP TERROR [None]
  - SOMNOLENCE [None]
  - TREMOR [None]
  - VISION BLURRED [None]
  - WEIGHT INCREASED [None]
